FAERS Safety Report 8619444-7 (Version None)
Quarter: 2012Q3

REPORT INFORMATION
  Report Type: 
  Country: None (occurrence: None)
  Receive Date: 20120824
  Receipt Date: 20120814
  Transmission Date: 20120928
  Serious: Yes (Hospitalization, Other)
  Sender: FDA-Public Use
  Company Number: IT-BRISTOL-MYERS SQUIBB COMPANY-16855603

PATIENT
  Age: 82 Year
  Sex: Female

DRUGS (3)
  1. NITROGLYCERIN [Concomitant]
  2. COUMADIN [Suspect]
     Indication: ATRIAL FIBRILLATION
     Dosage: 1 DF:COUMADIN 5 MG
     Route: 048
     Dates: start: 20110801, end: 20120811
  3. ALTIAZEM [Concomitant]

REACTIONS (4)
  - HYPOCOAGULABLE STATE [None]
  - INJURY [None]
  - HAEMATOMA [None]
  - ANAEMIA [None]
